FAERS Safety Report 6599186-2 (Version None)
Quarter: 2010Q1

REPORT INFORMATION
  Report Type: 
  Country: None (occurrence: None)
  Receive Date: 20100212
  Receipt Date: 20090917
  Transmission Date: 20100710
  Serious: No
  Sender: FDA-Public Use
  Company Number: 2009-00616

PATIENT
  Age: 45 Year
  Sex: Male
  Weight: 99.7913 kg

DRUGS (4)
  1. ZICAM COLD REMEDY ORAL MIST [Suspect]
     Dosage: QID - 1 DAY
     Dates: start: 20090915, end: 20090916
  2. TRUVADA [Concomitant]
  3. VIRACEPT [Concomitant]
  4. CADUET [Concomitant]

REACTIONS (1)
  - AGEUSIA [None]
